FAERS Safety Report 20835186 (Version 2)
Quarter: 2025Q3

REPORT INFORMATION
  Report Type: Spontaneous
  Country: US (occurrence: US)
  Receive Date: 20220516
  Receipt Date: 20250813
  Transmission Date: 20251020
  Serious: No
  Sender: SANOFI AVENTIS
  Company Number: US-SA-SAC20220512001190

PATIENT
  Age: 42 Year
  Sex: Female

DRUGS (11)
  1. DUPIXENT [Suspect]
     Active Substance: DUPILUMAB
     Indication: Dermatitis atopic
     Dosage: 300 MG, QOW
     Route: 058
     Dates: start: 20220506
  2. ROSUVASTATIN [Suspect]
     Active Substance: ROSUVASTATIN
     Route: 065
  3. VITAMINS NOS [Concomitant]
     Active Substance: VITAMINS
  4. SYNTHROID [Concomitant]
     Active Substance: LEVOTHYROXINE SODIUM
  5. VASCEPA [Concomitant]
     Active Substance: ICOSAPENT ETHYL
  6. JARDIANCE [Concomitant]
     Active Substance: EMPAGLIFLOZIN
  7. HUMALOG [Concomitant]
     Active Substance: INSULIN LISPRO
  8. MOUNJARO [Concomitant]
     Active Substance: TIRZEPATIDE
  9. MONTELUKAST [Concomitant]
     Active Substance: MONTELUKAST
  10. COLLAGEN [Concomitant]
     Active Substance: COLLAGEN
  11. LABETALOL HYDROCHLORIDE [Concomitant]
     Active Substance: LABETALOL HYDROCHLORIDE

REACTIONS (7)
  - Psychiatric symptom [Not Recovered/Not Resolved]
  - Depression [Not Recovered/Not Resolved]
  - Dry skin [Unknown]
  - Inappropriate schedule of product administration [Unknown]
  - Dermatitis [Unknown]
  - Dry eye [Not Recovered/Not Resolved]
  - Arthralgia [Unknown]

NARRATIVE: CASE EVENT DATE: 20220501
